FAERS Safety Report 8128762-0 (Version None)
Quarter: 2012Q1

REPORT INFORMATION
  Report Type: 
  Country: None (occurrence: None)
  Receive Date: 20120210
  Receipt Date: 20120128
  Transmission Date: 20120608
  Serious: Yes (Other)
  Sender: FDA-Public Use
  Company Number: US-WATSON-2012-01455

PATIENT
  Sex: Female
  Weight: 61.678 kg

DRUGS (1)
  1. LEVONORGESTREL [Suspect]
     Indication: POST COITAL CONTRACEPTION
     Dosage: FIRST DOSE TAKEN WITHIN 24 HOURS, SECOND DOSE TAKEN 12 HOURS LATER
     Route: 048
     Dates: start: 20120115, end: 20120115

REACTIONS (7)
  - ECTOPIC PREGNANCY [None]
  - DRUG INEFFECTIVE [None]
  - PREGNANCY AFTER POST COITAL CONTRACEPTION [None]
  - ABORTION SPONTANEOUS [None]
  - ABDOMINAL PAIN LOWER [None]
  - ABDOMINAL PAIN UPPER [None]
  - MATERNAL EXPOSURE DURING PREGNANCY [None]
